APPROVED DRUG PRODUCT: TADALAFIL
Active Ingredient: TADALAFIL
Strength: 2.5MG
Dosage Form/Route: TABLET;ORAL
Application: A210069 | Product #001 | TE Code: AB1
Applicant: DR REDDYS LABORATORIES LTD
Approved: Mar 26, 2019 | RLD: No | RS: No | Type: RX